FAERS Safety Report 5336223-7 (Version None)
Quarter: 2007Q2

REPORT INFORMATION
  Report Type: 
  Country: None (occurrence: None)
  Receive Date: 20070315
  Receipt Date: 20061213
  Transmission Date: 20071010
  Serious: No
  Sender: FDA-Public Use
  Company Number: BDI-008954

PATIENT
  Age: 51 Year
  Sex: Male
  Weight: 81.36 kg

DRUGS (9)
  1. MULTIHANCE [Suspect]
     Indication: NUCLEAR MAGNETIC RESONANCE IMAGING
     Dosage: 20 ML ONCE IV
     Route: 042
     Dates: start: 20061213, end: 20061213
  2. SOMA [Concomitant]
  3. DESERIL [Concomitant]
  4. LOPRESSOR [Concomitant]
  5. ZOLIM [Concomitant]
  6. BENACAR [Concomitant]
  7. ACTOS [Concomitant]
  8. NEXIUM [Concomitant]
  9. COUMADIN [Concomitant]

REACTIONS (1)
  - HYPERSENSITIVITY [None]
